FAERS Safety Report 5160012-X (Version None)
Quarter: 2006Q4

REPORT INFORMATION
  Report Type: 
  Country: None (occurrence: None)
  Receive Date: 20061129
  Receipt Date: 20060629
  Transmission Date: 20070319
  Serious: No
  Sender: FDA-Public Use
  Company Number: US-GLAXOSMITHKLINE-A0610775A

PATIENT
  Age: 36 Year
  Sex: Female
  Weight: 100 kg

DRUGS (5)
  1. WELLBUTRIN SR [Suspect]
     Indication: DEPRESSION
     Dosage: 150MG PER DAY
     Route: 048
     Dates: start: 20060627
  2. KLONOPIN [Concomitant]
     Indication: ANXIETY
     Dosage: .5MG TWICE PER DAY
     Route: 048
     Dates: start: 20060627
  3. AMBIEN [Concomitant]
     Indication: INSOMNIA
     Dosage: 10MG AS REQUIRED
     Route: 048
  4. MELATONIN [Concomitant]
     Indication: INSOMNIA
     Dosage: 3MG AS REQUIRED
     Route: 048
  5. DEPO-PROVERA [Concomitant]
     Route: 042

REACTIONS (2)
  - INSOMNIA [None]
  - MEDICATION ERROR [None]
